FAERS Safety Report 4345768-8 (Version None)
Quarter: 2004Q2

REPORT INFORMATION
  Report Type: 
  Country: None (occurrence: None)
  Receive Date: 20040421
  Receipt Date: 20040408
  Transmission Date: 20050107
  Serious: Yes (Death)
  Sender: FDA-Public Use
  Company Number: HQWYE408209APR04

PATIENT
  Age: 65 Year
  Sex: Male

DRUGS (1)
  1. TAZOCIN (PIPERACILLIN/TAZOBACTAM, INJECTION) [Suspect]
     Dosage: 4.5 GRAMS DAILY
     Route: 042
     Dates: start: 20040405, end: 20040405

REACTIONS (8)
  - ACUTE LYMPHOCYTIC LEUKAEMIA [None]
  - BLOOD PRESSURE DECREASED [None]
  - CONCOMITANT DISEASE PROGRESSION [None]
  - DIABETES MELLITUS [None]
  - HAEMORRHAGE INTRACRANIAL [None]
  - HYPOVENTILATION [None]
  - LOSS OF CONSCIOUSNESS [None]
  - SEPSIS [None]
